FAERS Safety Report 5133147-5 (Version None)
Quarter: 2006Q4

REPORT INFORMATION
  Report Type: 
  Country: None (occurrence: None)
  Receive Date: 20061018
  Receipt Date: 20061005
  Transmission Date: 20070319
  Serious: Yes (Other)
  Sender: FDA-Public Use
  Company Number: SPV1-2006-01173

PATIENT
  Age: 29 Year
  Sex: Female

DRUGS (2)
  1. PENTASA [Suspect]
     Indication: CROHN'S DISEASE
     Dosage: UNK, UNK, ORAL
     Route: 048
     Dates: start: 19940101
  2. ASPARTATE POTASSIUM         (ASPARTATE POTASSIUM) [Concomitant]

REACTIONS (2)
  - HYPOAESTHESIA [None]
  - HYPOKALAEMIA [None]
